FAERS Safety Report 5344197-8 (Version None)
Quarter: 2007Q2

REPORT INFORMATION
  Report Type: 
  Country: None (occurrence: None)
  Receive Date: 20070604
  Receipt Date: 20070524
  Transmission Date: 20071010
  Serious: Yes (Hospitalization)
  Sender: FDA-Public Use
  Company Number: ES-ROCHE-499383

PATIENT
  Age: 62 Year
  Sex: Female

DRUGS (4)
  1. BONIVA [Suspect]
     Indication: OSTEOPOROSIS
     Dosage: DRUG FORMULATION REPORTED: COATED TABLETS
     Route: 048
     Dates: start: 20070301, end: 20070501
  2. VENLAFAXINE HCL [Concomitant]
  3. 1 CONCOMITANT DRUG [Concomitant]
     Dosage: DRUG NAME REPORTED: GASTRIC PROTECTOR
  4. VALSARTAN [Concomitant]
     Indication: HYPERTENSION

REACTIONS (1)
  - HAEMOLYTIC ANAEMIA [None]
